FAERS Safety Report 11193710 (Version 2)
Quarter: 2015Q3

REPORT INFORMATION
  Report Type: Report from Study
  Country: TR (occurrence: TR)
  Receive Date: 20150616
  Receipt Date: 20150925
  Transmission Date: 20151125
  Serious: Yes (Death, Hospitalization)
  Sender: FDA-Public Use
  Company Number: TR-EMD SERONO-8029490

PATIENT
  Age: 9 Year
  Sex: Male
  Weight: 11 kg

DRUGS (1)
  1. SAIZEN [Suspect]
     Active Substance: SOMATROPIN
     Indication: GROWTH HORMONE DEFICIENCY
     Dates: start: 201208, end: 201504

REACTIONS (3)
  - Pyrexia [Fatal]
  - Headache [Unknown]
  - Hypertension [Fatal]

NARRATIVE: CASE EVENT DATE: 201504
